FAERS Safety Report 20028294 (Version 3)
Quarter: 2021Q4

REPORT INFORMATION
  Report Type: Report from Study
  Country: CA (occurrence: None)
  Receive Date: 20211103
  Receipt Date: 20211109
  Transmission Date: 20220303
  Serious: Yes (Life-Threatening, Other)
  Sender: FDA-Public Use
  Company Number: CA-ROCHE-2848906

PATIENT
  Age: 90 Year
  Sex: Male
  Weight: 67 kg

DRUGS (8)
  1. POLATUZUMAB VEDOTIN [Suspect]
     Active Substance: POLATUZUMAB VEDOTIN
     Indication: Diffuse large B-cell lymphoma
     Dosage: START DATE OF MOST RECENT DOSE (117.9 MG) OF STUDY DRUG PRIOR TO AE: 11/NOV/2015
     Route: 042
     Dates: start: 20150820
  2. OBINUTUZUMAB [Suspect]
     Active Substance: OBINUTUZUMAB
     Indication: Diffuse large B-cell lymphoma
     Dosage: START DATE OF MOST RECENT DOSE (1000 MG) OF STUDY DRUG PRIOR TO AE: 11/NOV/2015
     Route: 042
     Dates: start: 20150819
  3. BENDAMUSTINE [Suspect]
     Active Substance: BENDAMUSTINE
     Indication: Diffuse large B-cell lymphoma
     Dosage: START DATE OF MOST RECENT DOSE (154.8 MG) OF STUDY DRUG PRIOR TO AE:12/NOV/2015
     Route: 042
     Dates: start: 20150820
  4. XARELTO [Concomitant]
     Active Substance: RIVAROXABAN
     Dates: start: 20131105, end: 20210610
  5. ALFUZOSIN [Concomitant]
     Active Substance: ALFUZOSIN
     Indication: Benign prostatic hyperplasia
     Dates: start: 201709
  6. TYLENOL [Concomitant]
     Active Substance: ACETAMINOPHEN
     Indication: Back pain
     Dates: start: 20150809
  7. TYLENOL [Concomitant]
     Active Substance: ACETAMINOPHEN
     Indication: Abdominal pain
  8. SOTALOL [Concomitant]
     Active Substance: SOTALOL
     Dates: start: 20151128, end: 20210610

REACTIONS (2)
  - Atrial thrombosis [Recovered/Resolved]
  - Renal cancer [Not Recovered/Not Resolved]

NARRATIVE: CASE EVENT DATE: 20210526
